FAERS Safety Report 18372014 (Version 1)
Quarter: 2020Q4

REPORT INFORMATION
  Report Type: Spontaneous
  Country: US (occurrence: US)
  Receive Date: 20201012
  Receipt Date: 20201012
  Transmission Date: 20210114
  Serious: Yes (Hospitalization)
  Sender: FDA-Public Use
  Company Number: US-BRACCO-2020US04108

PATIENT
  Sex: Female

DRUGS (2)
  1. PROHANCE [Suspect]
     Active Substance: GADOTERIDOL
     Indication: MAGNETIC RESONANCE IMAGING
     Dosage: UNK UNK, SINGLE
     Route: 042
     Dates: start: 20200922, end: 20200922
  2. ACIPHEX [Concomitant]
     Active Substance: RABEPRAZOLE SODIUM

REACTIONS (11)
  - Headache [Recovering/Resolving]
  - Pharyngeal hypoaesthesia [Recovering/Resolving]
  - Fatigue [Recovering/Resolving]
  - Discomfort [Recovering/Resolving]
  - Nausea [Recovering/Resolving]
  - Injection site coldness [Recovering/Resolving]
  - Paraesthesia [Recovering/Resolving]
  - Photophobia [Recovering/Resolving]
  - Hypoaesthesia oral [Recovering/Resolving]
  - Nystagmus [Recovering/Resolving]
  - Hypoaesthesia [Recovering/Resolving]

NARRATIVE: CASE EVENT DATE: 20200922
